FAERS Safety Report 23948454 (Version 1)
Quarter: 2024Q2

REPORT INFORMATION
  Report Type: Spontaneous
  Country: CN (occurrence: CN)
  Receive Date: 20240607
  Receipt Date: 20240607
  Transmission Date: 20240717
  Serious: Yes (Other)
  Sender: FDA-Public Use
  Company Number: CN-JNJFOC-20240589180

PATIENT
  Age: 25 Year
  Sex: Male
  Weight: 75 kg

DRUGS (2)
  1. INVEGA [Suspect]
     Active Substance: PALIPERIDONE
     Indication: Psychotic disorder
     Route: 048
     Dates: start: 20240418, end: 20240425
  2. INVEGA [Suspect]
     Active Substance: PALIPERIDONE
     Indication: Drug therapy

REACTIONS (1)
  - Myocardial necrosis marker increased [Not Recovered/Not Resolved]

NARRATIVE: CASE EVENT DATE: 20240425
